FAERS Safety Report 8356126-3 (Version None)
Quarter: 2012Q2

REPORT INFORMATION
  Report Type: 
  Country: None (occurrence: None)
  Receive Date: 20120514
  Receipt Date: 20120430
  Transmission Date: 20120825
  Serious: Yes (Death)
  Sender: FDA-Public Use
  Company Number: AT-UCBSA-056965

PATIENT
  Age: 78 Year
  Sex: Male
  Weight: 85 kg

DRUGS (10)
  1. DABIGATRAN [Suspect]
     Dosage: 10 TABLETS OF 110 MG DURING 5 DAYS
  2. ENALAPRIL MALEATE [Concomitant]
     Dosage: DAILY DOSE: 20 MG
  3. PHENPROCOUMON [Concomitant]
     Dosage: DAILY DOSE: 3 MG
  4. DIGOXIN [Concomitant]
     Dosage: DAILY DOSE:0.1 MG
  5. HYDROCHLOROTHIAZIDE [Concomitant]
     Dosage: DAILY DOSE: 12.5 MG
  6. ALPROSTADIL [Suspect]
     Dosage: 40 MICROGRAMS INFUSION STARTED
  7. PHENPROCOUMON [Concomitant]
     Dosage: 9 MG
  8. ENOXAPARIN [Concomitant]
  9. DALTEPARIN SODIUM [Suspect]
     Dosage: 5000 IE BID
  10. PHENPROCOUMON [Concomitant]
     Dosage: 6 MG/DAY

REACTIONS (1)
  - BASILAR ARTERY OCCLUSION [None]
